FAERS Safety Report 9593092 (Version 1)
Quarter: 2013Q4

REPORT INFORMATION
  Report Type: Spontaneous
  Country: US (occurrence: None)
  Receive Date: 20131002
  Receipt Date: 20131002
  Transmission Date: 20140711
  Serious: Yes (Death)
  Sender: FDA-Public Use
  Company Number: FK201304418

PATIENT
  Age: 55 Year
  Sex: Male
  Weight: 101.6 kg

DRUGS (5)
  1. VANCOMYCIN HYDROCHLORIDE [Suspect]
     Indication: PYREXIA
     Route: 042
     Dates: start: 20130817, end: 20130817
  2. EPOGEN (EPOETIN ALFA) [Concomitant]
  3. HEPARIN (HEPARIN) [Concomitant]
  4. METOCLOPRAMIDE HYDROCHLORIDE (METOCLOPRAMIDE HYDROCHLORIDE) [Concomitant]
  5. ZEMPLAR (PARICALCITOL) [Concomitant]

REACTIONS (2)
  - Convulsion [None]
  - Cardiac arrest [None]
